FAERS Safety Report 6129032-2 (Version None)
Quarter: 2009Q1

REPORT INFORMATION
  Report Type: 
  Country: None (occurrence: None)
  Receive Date: 20090324
  Receipt Date: 20090311
  Transmission Date: 20090719
  Serious: Yes (Hospitalization, Other)
  Sender: FDA-Public Use
  Company Number: US-ELI_LILLY_AND_COMPANY-US200903002775

PATIENT
  Sex: Female

DRUGS (4)
  1. FORTEO [Suspect]
     Dosage: UNK, UNK
     Dates: start: 20080801
  2. OMEPRAZOLE [Concomitant]
  3. ARICEPT [Concomitant]
  4. VITAMINS NOS [Concomitant]

REACTIONS (2)
  - BRAIN NEOPLASM [None]
  - CONVULSION [None]
